FAERS Safety Report 8094466-6 (Version None)
Quarter: 2012Q1

REPORT INFORMATION
  Report Type: 
  Country: None (occurrence: None)
  Receive Date: 20120130
  Receipt Date: 20120117
  Transmission Date: 20120608
  Serious: No
  Sender: FDA-Public Use
  Company Number: DE-ELI_LILLY_AND_COMPANY-DE201201005089

PATIENT
  Sex: Female

DRUGS (2)
  1. CYMBALTA [Suspect]
     Indication: DEPRESSION
     Dosage: 30 MG, UNK
  2. DULOXETIME HYDROCHLORIDE [Suspect]
     Indication: DEPRESSION
     Dosage: 20 MG, UNK

REACTIONS (5)
  - BLOOD GLUCOSE INCREASED [None]
  - WEIGHT INCREASED [None]
  - ADVERSE EVENT [None]
  - OFF LABEL USE [None]
  - HEPATIC ENZYME INCREASED [None]
